FAERS Safety Report 14018558 (Version 1)
Quarter: 2017Q3

REPORT INFORMATION
  Report Type: Spontaneous
  Country: SE (occurrence: SE)
  Receive Date: 20170928
  Receipt Date: 20170928
  Transmission Date: 20171128
  Serious: Yes (Other)
  Sender: FDA-Public Use
  Company Number: SE-UCBSA-2017038412

PATIENT
  Age: 42 Year
  Sex: Male

DRUGS (1)
  1. KEPPRA [Suspect]
     Active Substance: LEVETIRACETAM
     Indication: EPILEPSY
     Dosage: UNK
     Dates: end: 20170524

REACTIONS (2)
  - Weight increased [Not Recovered/Not Resolved]
  - Obesity [Not Recovered/Not Resolved]
